FAERS Safety Report 5092573-3 (Version None)
Quarter: 2006Q3

REPORT INFORMATION
  Report Type: 
  Country: None (occurrence: None)
  Receive Date: 20060828
  Receipt Date: 20060815
  Transmission Date: 20061208
  Serious: Yes (Other)
  Sender: FDA-Public Use
  Company Number: 2006100017

PATIENT
  Age: 38 Year
  Sex: Male
  Weight: 102.5129 kg

DRUGS (10)
  1. NEURONTIN [Suspect]
     Indication: CONVULSION
     Dosage: 100 MG
     Dates: start: 19960101, end: 20060801
  2. GEODON [Suspect]
     Indication: DRUG USE FOR UNKNOWN INDICATION
  3. ZOLOFT [Suspect]
     Indication: DRUG USE FOR UNKNOWN INDICATION
     Dates: start: 19960101
  4. TRILEPTAL [Concomitant]
  5. CLONAZEPAM [Concomitant]
  6. MULTIVITAMIN [Concomitant]
  7. FOLIC ACID [Concomitant]
  8. SEROQUEL [Concomitant]
  9. LUVOX [Concomitant]
  10. RISPERDAL [Concomitant]

REACTIONS (7)
  - BALANCE DISORDER [None]
  - CONVULSION [None]
  - CRYING [None]
  - GRIP STRENGTH DECREASED [None]
  - HEART RATE INCREASED [None]
  - MOVEMENT DISORDER [None]
  - NAUSEA [None]
